FAERS Safety Report 4598075-2 (Version None)
Quarter: 2005Q1

REPORT INFORMATION
  Report Type: 
  Country: None (occurrence: None)
  Receive Date: 20050204
  Receipt Date: 20040210
  Transmission Date: 20050727
  Serious: Yes (Other)
  Sender: FDA-Public Use
  Company Number: PHEH2004US01806

PATIENT
  Age: 24 Year
  Sex: Male
  Weight: 136.1 kg

DRUGS (4)
  1. CLOZARIL [Suspect]
     Dosage: 375 MG/DAY, ORAL
     Route: 048
  2. PAXIL [Concomitant]
  3. GEODON [Concomitant]
  4. ATIVAN [Concomitant]

REACTIONS (2)
  - BLOOD GLUCOSE INCREASED [None]
  - WEIGHT INCREASED [None]
